FAERS Safety Report 8278894-1 (Version None)
Quarter: 2012Q2

REPORT INFORMATION
  Report Type: 
  Country: None (occurrence: None)
  Receive Date: 20120412
  Receipt Date: 20120228
  Transmission Date: 20120825
  Serious: No
  Sender: FDA-Public Use
  Company Number: US-ASTRAZENECA-2010SE45213

PATIENT
  Age: 58 Year
  Sex: Female
  Weight: 57.6 kg

DRUGS (7)
  1. BACTRIM [Concomitant]
     Indication: BRONCHITIS
  2. SEROQUEL [Suspect]
     Route: 048
  3. BACTRIM [Concomitant]
     Indication: SINUSITIS
  4. SEROQUEL [Suspect]
     Indication: BIPOLAR DISORDER
     Route: 048
  5. SEROQUEL [Suspect]
     Route: 048
  6. NEXIUM [Suspect]
     Route: 048
  7. SEROQUEL [Suspect]
     Indication: INSOMNIA
     Route: 048

REACTIONS (3)
  - SINUSITIS [None]
  - OROPHARYNGEAL PAIN [None]
  - BRONCHITIS [None]
